FAERS Safety Report 23661597 (Version 1)
Quarter: 2024Q1

REPORT INFORMATION
  Report Type: Spontaneous
  Country: US (occurrence: US)
  Receive Date: 20240322
  Receipt Date: 20240322
  Transmission Date: 20240409
  Serious: No
  Sender: FDA-Public Use
  Company Number: US-STERISCIENCE B.V.-2023-ST-001284

PATIENT
  Age: 26 Year
  Sex: Female

DRUGS (5)
  1. LABETALOL [Suspect]
     Active Substance: LABETALOL\LABETALOL HYDROCHLORIDE
     Indication: Pre-eclampsia
     Dosage: 100 MILLIGRAM, BID
     Route: 065
  2. LABETALOL [Suspect]
     Active Substance: LABETALOL\LABETALOL HYDROCHLORIDE
     Indication: Paraganglion neoplasm
  3. LABETALOL [Suspect]
     Active Substance: LABETALOL\LABETALOL HYDROCHLORIDE
     Indication: Metastatic neoplasm
  4. NICARDIPINE [Suspect]
     Active Substance: NICARDIPINE
     Indication: Pre-eclampsia
     Dosage: UNK
     Route: 065
  5. MAGNESIUM [Suspect]
     Active Substance: MAGNESIUM
     Indication: Pre-eclampsia
     Dosage: UNK
     Route: 065

REACTIONS (3)
  - Premature delivery [Unknown]
  - Maternal exposure during pregnancy [Unknown]
  - Off label use [Unknown]
